FAERS Safety Report 9472514 (Version 3)
Quarter: 2013Q3

REPORT INFORMATION
  Report Type: Spontaneous
  Country: JP (occurrence: JP)
  Receive Date: 20130823
  Receipt Date: 20130925
  Transmission Date: 20140515
  Serious: Yes (Hospitalization, Other)
  Sender: FDA-Public Use
  Company Number: PHHY2013JP091291

PATIENT
  Age: 52 Year
  Sex: Male

DRUGS (2)
  1. CLOZARIL [Suspect]
     Indication: SCHIZOPHRENIA
     Dosage: 12.5 MG, UNK
     Dates: start: 20110713
  2. CLOZARIL [Suspect]
     Dosage: 200 MG, DAILY
     Route: 048
     Dates: end: 20130814

REACTIONS (4)
  - Extradural haematoma [Recovered/Resolved]
  - Dysphagia [Recovered/Resolved]
  - Altered state of consciousness [Recovered/Resolved]
  - Fall [Unknown]
